FAERS Safety Report 6598663-8 (Version None)
Quarter: 2010Q1

REPORT INFORMATION
  Report Type: 
  Country: None (occurrence: None)
  Receive Date: 20100224
  Receipt Date: 20100216
  Transmission Date: 20100710
  Serious: Yes (Other)
  Sender: FDA-Public Use
  Company Number: CA-JNJFOC-20100110822

PATIENT
  Age: 77 Year
  Sex: Female
  Weight: 90.72 kg

DRUGS (8)
  1. EXTRA STRENGTH TYLENOL [Suspect]
     Route: 048
  2. EXTRA STRENGTH TYLENOL [Suspect]
     Indication: DRUG USE FOR UNKNOWN INDICATION
     Route: 048
  3. ASPIRIN [Concomitant]
  4. ATENOLOL [Concomitant]
  5. ELTROXIN [Concomitant]
  6. NOVOSPIROTON [Concomitant]
  7. PANTOPRAZOLE [Concomitant]
  8. VITAMINS NOS [Concomitant]

REACTIONS (4)
  - CHEST PAIN [None]
  - HYPERHIDROSIS [None]
  - MALAISE [None]
  - NERVOUSNESS [None]
